FAERS Safety Report 18045602 (Version 1)
Quarter: 2020Q3

REPORT INFORMATION
  Report Type: Spontaneous
  Country: US (occurrence: US)
  Receive Date: 20200720
  Receipt Date: 20200720
  Transmission Date: 20201103
  Serious: Yes (Life-Threatening, Hospitalization, Other)
  Sender: FDA-Public Use
  Company Number: US-MYLANLABS-2020M1064523

PATIENT
  Age: 42 Year
  Sex: Male

DRUGS (12)
  1. FENTANYL. [Suspect]
     Active Substance: FENTANYL
     Indication: PRODUCT USED FOR UNKNOWN INDICATION
     Dosage: 1000 MICROGRAM
  2. METHYLENE BLUE. [Suspect]
     Active Substance: METHYLENE BLUE
     Indication: HYPOTENSION
     Dosage: 70 MILLIGRAM
  3. PAROXETINE MYLAN [Interacting]
     Active Substance: PAROXETINE
     Indication: DEPRESSION
     Dosage: 40 MILLIGRAM, QD
     Route: 048
  4. FENUGREEK                          /01475701/ [Suspect]
     Active Substance: HERBALS
     Indication: PHYTOTHERAPY
  5. METOPROLOL. [Concomitant]
     Active Substance: METOPROLOL
     Dosage: 12 MILLIGRAM 12HOURS
     Route: 048
  6. BUPROPION. [Interacting]
     Active Substance: BUPROPION
     Indication: ATTENTION DEFICIT HYPERACTIVITY DISORDER
     Dosage: 75 MILLIGRAM, QD
  7. PANAX GINSENG ROOT [Interacting]
     Active Substance: ASIAN GINSENG
     Indication: PHYTOTHERAPY
     Dosage: UNK
  8. ENOXAPARIN [Concomitant]
     Active Substance: ENOXAPARIN
     Indication: PRODUCT USED FOR UNKNOWN INDICATION
     Dosage: 40 MILLIGRAM, QD
  9. METOPROLOL. [Concomitant]
     Active Substance: METOPROLOL
     Indication: ATRIAL FIBRILLATION
     Dosage: UNK
     Route: 048
  10. NOREPINEPHRINE. [Concomitant]
     Active Substance: NOREPINEPHRINE
     Indication: HYPOTENSION
     Dosage: UNK
  11. BASIL FES [Suspect]
     Active Substance: BASIL\HERBALS
     Indication: PHYTOTHERAPY
     Dosage: UNK
  12. VASOPRESSIN. [Concomitant]
     Active Substance: VASOPRESSIN
     Indication: HYPOTENSION
     Dosage: UNK

REACTIONS (3)
  - Serotonin syndrome [Recovering/Resolving]
  - Drug interaction [Recovering/Resolving]
  - Herbal interaction [Recovering/Resolving]
